FAERS Safety Report 11135520 (Version 1)
Quarter: 2015Q2

REPORT INFORMATION
  Report Type: Spontaneous
  Country: JP (occurrence: None)
  Receive Date: 20150521
  Receipt Date: 20150521
  Transmission Date: 20150821
  Serious: Yes (Other)
  Sender: FDA-Public Use
  Company Number: COR_00294_2015

PATIENT
  Age: 47 Year
  Sex: Female

DRUGS (5)
  1. ISONIAZID. [Suspect]
     Active Substance: ISONIAZID
     Indication: PERITONEAL TUBERCULOSIS
  2. CARBOPLATIN. [Suspect]
     Active Substance: CARBOPLATIN
     Indication: SEROUS CYSTADENOCARCINOMA OVARY
     Dosage: FOUR COURSES, WAS ADMINISTERED ON DAYS 1, 8 AND 15 EVERY 4 WEEKS AUC = 2
  3. ETHAMBUTOL [Suspect]
     Active Substance: ETHAMBUTOL HYDROCHLORIDE
     Indication: PERITONEAL TUBERCULOSIS
  4. PACLITAXEL. [Suspect]
     Active Substance: PACLITAXEL
     Indication: SEROUS CYSTADENOCARCINOMA OVARY
     Dosage: FOUR COURSES, WAS ADMINISTERED ON DAYS 1, 8 AND 15 EVERY 4 WEEKS
  5. RIFAMPICIN [Suspect]
     Active Substance: RIFAMPIN
     Indication: PERITONEAL TUBERCULOSIS

REACTIONS (3)
  - Alanine aminotransferase increased [None]
  - Thrombocytopenia [None]
  - Aspartate aminotransferase increased [None]
